FAERS Safety Report 5023260-5 (Version None)
Quarter: 2006Q2

REPORT INFORMATION
  Report Type: 
  Country: None (occurrence: None)
  Receive Date: 20060612
  Receipt Date: 20060601
  Transmission Date: 20061013
  Serious: Yes (Death, Hospitalization)
  Sender: FDA-Public Use
  Company Number: US-JNJFOC-20040303639

PATIENT
  Sex: Male

DRUGS (18)
  1. REMICADE [Suspect]
     Route: 042
  2. REMICADE [Suspect]
     Indication: RHEUMATOID ARTHRITIS
     Route: 042
  3. FOLIC ACID [Concomitant]
  4. METHOTREXATE [Concomitant]
  5. PREDNISONE [Concomitant]
  6. LANTUS [Concomitant]
  7. HUMULIN [Concomitant]
  8. HUMULIN [Concomitant]
  9. AMARYL [Concomitant]
  10. ALTACE [Concomitant]
  11. K-DUR 10 [Concomitant]
  12. LIPITOR [Concomitant]
  13. ACIPHEX [Concomitant]
  14. FOSAMAX [Concomitant]
  15. ZOLOFT [Concomitant]
  16. NIASPAN [Concomitant]
  17. LORTAB [Concomitant]
  18. LORTAB [Concomitant]

REACTIONS (4)
  - CARDIAC DISORDER [None]
  - CHRONIC OBSTRUCTIVE PULMONARY DISEASE [None]
  - MYOCARDIAL ISCHAEMIA [None]
  - SLEEP APNOEA SYNDROME [None]
